FAERS Safety Report 20316872 (Version 1)
Quarter: 2022Q1

REPORT INFORMATION
  Report Type: Spontaneous
  Country: US (occurrence: US)
  Receive Date: 20220110
  Receipt Date: 20220110
  Transmission Date: 20220423
  Serious: No
  Sender: FDA-Public Use
  Company Number: US-009507513-2112USA005702

PATIENT
  Age: 42 Year

DRUGS (3)
  1. TEMODAR [Suspect]
     Active Substance: TEMOZOLOMIDE
     Indication: Anaplastic oligodendroglioma
     Dosage: UNK
  2. LOMUSTINE [Concomitant]
     Active Substance: LOMUSTINE
     Indication: Anaplastic oligodendroglioma
     Dosage: UNK
  3. BEVACIZUMAB [Concomitant]
     Active Substance: BEVACIZUMAB
     Indication: Anaplastic oligodendroglioma
     Dosage: UNK

REACTIONS (1)
  - Product use in unapproved indication [Unknown]
